FAERS Safety Report 24981421 (Version 2)
Quarter: 2025Q1

REPORT INFORMATION
  Report Type: Other
  Country: US (occurrence: US)
  Receive Date: 20250218
  Receipt Date: 20250224
  Transmission Date: 20250409
  Serious: Yes (Other)
  Sender: RHYTHM PHARMACEUTICALS, INC.
  Company Number: US-Rhythm Pharmaceuticals, Inc.-2023RHM000317

PATIENT
  Age: 46 Year
  Sex: Female

DRUGS (15)
  1. IMCIVREE [Suspect]
     Active Substance: SETMELANOTIDE
     Indication: Laurence-Moon-Bardet-Biedl syndrome
     Route: 058
  2. IMCIVREE [Suspect]
     Active Substance: SETMELANOTIDE
     Route: 058
  3. IMCIVREE [Suspect]
     Active Substance: SETMELANOTIDE
     Route: 058
     Dates: start: 20230924
  4. IMCIVREE [Suspect]
     Active Substance: SETMELANOTIDE
     Route: 058
  5. IMCIVREE [Suspect]
     Active Substance: SETMELANOTIDE
     Route: 058
  6. CALCIUM CARBONATE [Concomitant]
     Active Substance: CALCIUM CARBONATE
     Indication: Product used for unknown indication
     Route: 065
  7. CLARITIN [Concomitant]
     Active Substance: LORATADINE
     Indication: Product used for unknown indication
     Route: 065
  8. DOCUSATE [Concomitant]
     Active Substance: DOCUSATE
     Indication: Product used for unknown indication
     Route: 065
  9. MAGNESIUM OXIDE [Concomitant]
     Active Substance: MAGNESIUM OXIDE
     Indication: Product used for unknown indication
     Route: 065
  10. PROZAC [Concomitant]
     Active Substance: FLUOXETINE HYDROCHLORIDE
     Indication: Product used for unknown indication
     Route: 065
  11. METFORMIN [Concomitant]
     Active Substance: METFORMIN HYDROCHLORIDE
     Indication: Product used for unknown indication
     Route: 065
  12. MONTELUKAST [Concomitant]
     Active Substance: MONTELUKAST
     Indication: Product used for unknown indication
     Route: 065
  13. QVAR [Concomitant]
     Active Substance: BECLOMETHASONE DIPROPIONATE
     Indication: Product used for unknown indication
     Route: 065
  14. ALBUTEROL [Concomitant]
     Active Substance: ALBUTEROL
     Indication: Product used for unknown indication
     Route: 065
  15. multivitamins/minerals [Concomitant]
     Indication: Product used for unknown indication
     Route: 065

REACTIONS (15)
  - Skin cancer [Recovered/Resolved]
  - Irritability [Not Recovered/Not Resolved]
  - COVID-19 [Recovered/Resolved]
  - Off label use [Recovered/Resolved]
  - Incorrect dose administered [Unknown]
  - Malaise [Recovered/Resolved]
  - Increased appetite [Recovered/Resolved]
  - Suspected product quality issue [Recovered/Resolved]
  - Therapeutic product effect variable [Recovered/Resolved]
  - Nausea [Recovering/Resolving]
  - Dizziness [Not Recovered/Not Resolved]
  - Arthralgia [Not Recovered/Not Resolved]
  - Fatigue [Not Recovered/Not Resolved]
  - Vomiting [Not Recovered/Not Resolved]
  - Injection site reaction [Recovering/Resolving]

NARRATIVE: CASE EVENT DATE: 20230706
